FAERS Safety Report 16358772 (Version 2)
Quarter: 2020Q1

REPORT INFORMATION
  Report Type: Report from Study
  Country: MX (occurrence: MX)
  Receive Date: 20190527
  Receipt Date: 20200326
  Transmission Date: 20200409
  Serious: Yes (Other)
  Sender: FDA-Public Use
  Company Number: PHHY2019MX121346

PATIENT
  Age: 49 Year
  Sex: Female
  Weight: 57 kg

DRUGS (1)
  1. TEGRETOL [Suspect]
     Active Substance: CARBAMAZEPINE
     Indication: EPILEPSY
     Dosage: 200 MG, UNK (2 TABLETS IN MORNING, 1 AT MIDDAY, 2 AT NIGHT)
     Route: 048

REACTIONS (6)
  - Memory impairment [Unknown]
  - Acne [Not Recovered/Not Resolved]
  - Confusional state [Unknown]
  - Fall [Unknown]
  - Urticaria [Not Recovered/Not Resolved]
  - Loss of consciousness [Recovering/Resolving]

NARRATIVE: CASE EVENT DATE: 20200316
